FAERS Safety Report 21470057 (Version 2)
Quarter: 2024Q4

REPORT INFORMATION
  Report Type: Spontaneous
  Country: US (occurrence: US)
  Receive Date: 20221018
  Receipt Date: 20241115
  Transmission Date: 20250114
  Serious: No
  Sender: TAKEDA
  Company Number: US-TAKEDA-2022TUS073506

PATIENT
  Sex: Male
  Weight: 86 kg

DRUGS (3)
  1. MOTEGRITY [Suspect]
     Active Substance: PRUCALOPRIDE SUCCINATE
     Indication: Impaired gastric emptying
     Dosage: 1 MILLIGRAM, QD
     Dates: end: 20221008
  2. MOTEGRITY [Suspect]
     Active Substance: PRUCALOPRIDE SUCCINATE
     Indication: Gastrointestinal disorder
     Dosage: 2 MILLIGRAM, QD
  3. LEVODOPA [Concomitant]
     Active Substance: LEVODOPA
     Indication: Parkinson^s disease
     Dosage: UNK UNK, Q4HR

REACTIONS (7)
  - Myalgia [Unknown]
  - Rebound effect [Unknown]
  - Potentiating drug interaction [Unknown]
  - Insurance issue [Unknown]
  - Drug ineffective [Unknown]
  - Off label use [Unknown]
  - Wrong technique in product usage process [Unknown]
